FAERS Safety Report 25362443 (Version 1)
Quarter: 2025Q2

REPORT INFORMATION
  Report Type: Other
  Country: FR (occurrence: FR)
  Receive Date: 20250527
  Receipt Date: 20250527
  Transmission Date: 20250716
  Serious: Yes (Life-Threatening, Hospitalization, Other)
  Sender: INNOGENIX, LLC
  Company Number: FR-Innogenix, LLC-2177519

PATIENT
  Age: 44 Year
  Sex: Male

DRUGS (1)
  1. BACLOFEN [Suspect]
     Active Substance: BACLOFEN
     Indication: Product used for unknown indication

REACTIONS (7)
  - Generalised tonic-clonic seizure [Recovered/Resolved]
  - Overdose [Unknown]
  - Toxicity to various agents [Recovered/Resolved]
  - Tachycardia [Recovered/Resolved]
  - Coma [Recovered/Resolved]
  - Hypotension [Recovered/Resolved]
  - Sinus bradycardia [Recovered/Resolved]
